FAERS Safety Report 8338510-7 (Version None)
Quarter: 2012Q2

REPORT INFORMATION
  Report Type: 
  Country: None (occurrence: None)
  Receive Date: 20120504
  Receipt Date: 20120424
  Transmission Date: 20120825
  Serious: Yes (Hospitalization)
  Sender: FDA-Public Use
  Company Number: US-ABBOTT-12P-163-0928957-00

PATIENT
  Sex: Male
  Weight: 80.3 kg

DRUGS (8)
  1. DILANTIN [Suspect]
     Indication: PRODUCT USED FOR UNKNOWN INDICATION
     Route: 048
  2. UNKNOWN FOREST STUDY DRUG [Suspect]
     Indication: PRODUCT USED FOR UNKNOWN INDICATION
  3. HYDROCHLOROTHIAZIDE [Concomitant]
     Indication: HYPERTENSION
     Route: 048
     Dates: start: 19910101, end: 20111030
  4. TYLENOL W/ CODEINE NO. 3 [Concomitant]
     Indication: HEADACHE
     Route: 048
     Dates: start: 19960101
  5. RESTORIL [Concomitant]
     Indication: MYALGIA
     Route: 048
     Dates: start: 20111112
  6. METOPROLOL TARTRATE [Concomitant]
     Indication: HYPERTENSION
     Route: 048
     Dates: start: 19910101, end: 20111030
  7. VICODIN [Interacting]
     Indication: PRODUCT USED FOR UNKNOWN INDICATION
  8. INSULIN [Concomitant]
     Indication: DIABETES MELLITUS
     Route: 058
     Dates: start: 20030101

REACTIONS (11)
  - LETHARGY [None]
  - GAIT DISTURBANCE [None]
  - WOUND [None]
  - ALTERED STATE OF CONSCIOUSNESS [None]
  - HYPERHIDROSIS [None]
  - DRUG INTERACTION [None]
  - TOXICITY TO VARIOUS AGENTS [None]
  - SUBSTANCE ABUSE [None]
  - FALL [None]
  - SLOW RESPONSE TO STIMULI [None]
  - DYSSTASIA [None]
